FAERS Safety Report 9812898 (Version 1)
Quarter: 2014Q1

REPORT INFORMATION
  Report Type: Spontaneous
  Country: US (occurrence: US)
  Receive Date: 20140113
  Receipt Date: 20140113
  Transmission Date: 20141002
  Serious: No
  Sender: FDA-Public Use
  Company Number: US-PFIZER INC-2014004904

PATIENT
  Sex: 0

DRUGS (2)
  1. EFFEXOR [Suspect]
     Indication: HOT FLUSH
     Dosage: UNK
  2. EFFEXOR XR [Suspect]
     Indication: HOT FLUSH
     Dosage: UNK

REACTIONS (4)
  - Off label use [Unknown]
  - Weight increased [Unknown]
  - Hot flush [Unknown]
  - Therapeutic response unexpected [Unknown]
